FAERS Safety Report 22362020 (Version 1)
Quarter: 2023Q2

REPORT INFORMATION
  Report Type: Spontaneous
  Country: CO (occurrence: CO)
  Receive Date: 20230524
  Receipt Date: 20230524
  Transmission Date: 20230722
  Serious: Yes (Hospitalization, Other)
  Sender: FDA-Public Use
  Company Number: CO-PFIZER INC-PV202300089177

PATIENT
  Sex: Female

DRUGS (1)
  1. PALBOCICLIB [Suspect]
     Active Substance: PALBOCICLIB
     Dosage: 100 MG, UNSPECIFIED FREQUENCY
     Route: 048

REACTIONS (3)
  - Cognitive disorder [Unknown]
  - Mobility decreased [Unknown]
  - Diabetes mellitus [Unknown]
